FAERS Safety Report 4269530-X (Version None)
Quarter: 2004Q1

REPORT INFORMATION
  Report Type: 
  Country: None (occurrence: None)
  Receive Date: 20040113
  Receipt Date: 20031216
  Transmission Date: 20041129
  Serious: Yes (Life-Threatening, Hospitalization)
  Sender: FDA-Public Use
  Company Number: PHBS2003BE14094

PATIENT
  Age: 77 Year
  Sex: Female

DRUGS (6)
  1. NEORAL [Suspect]
     Indication: VASCULITIS
     Dosage: 150 MG/D
     Route: 048
     Dates: start: 20030924
  2. SIMVASTATIN [Suspect]
     Dosage: 40 MG/D
     Route: 065
  3. EMCONCOR [Concomitant]
  4. ZESTRIL [Concomitant]
  5. CORDARONE [Concomitant]
  6. TORENTAL [Concomitant]

REACTIONS (4)
  - DIFFICULTY IN WALKING [None]
  - DRUG INTERACTION [None]
  - GENERAL PHYSICAL HEALTH DETERIORATION [None]
  - RHABDOMYOLYSIS [None]
